FAERS Safety Report 6103058-7 (Version None)
Quarter: 2009Q1

REPORT INFORMATION
  Report Type: 
  Country: None (occurrence: None)
  Receive Date: 20090305
  Receipt Date: 20090223
  Transmission Date: 20090719
  Serious: Yes (Other)
  Sender: FDA-Public Use
  Company Number: US-JNJFOC-20090205975

PATIENT
  Sex: Female
  Weight: 31.98 kg

DRUGS (1)
  1. INVEGA [Suspect]
     Indication: MOOD SWINGS
     Route: 048

REACTIONS (8)
  - CRYING [None]
  - DROOLING [None]
  - FEELING JITTERY [None]
  - INSOMNIA [None]
  - MUSCLE TWITCHING [None]
  - NIPPLE DISORDER [None]
  - RESTLESSNESS [None]
  - WEIGHT INCREASED [None]
